FAERS Safety Report 6254651-2 (Version None)
Quarter: 2009Q3

REPORT INFORMATION
  Report Type: 
  Country: None (occurrence: None)
  Receive Date: 20090702
  Receipt Date: 20090622
  Transmission Date: 20100115
  Serious: Yes (Other)
  Sender: FDA-Public Use
  Company Number: B0579998A

PATIENT
  Age: 68 Year
  Sex: Male

DRUGS (10)
  1. DIGOXIN [Suspect]
     Dosage: .125MG PER DAY
     Route: 065
  2. ACIPIMOX [Suspect]
     Dosage: 500MG PER DAY
     Route: 065
  3. ACETYLSALICYLIC ACID [Suspect]
     Dosage: 75MG PER DAY
     Route: 065
  4. BISOPROLOL [Suspect]
     Dosage: 7.5MG PER DAY
     Route: 065
  5. EZETIMIBE [Suspect]
     Dosage: 10MG PER DAY
     Route: 065
  6. FUROSEMIDE INTENSOL [Suspect]
     Dosage: 160MG PER DAY
     Route: 065
  7. FUROSEMIDE INTENSOL [Suspect]
     Dosage: 240MG PER DAY
     Route: 065
  8. PERINDOPRIL [Suspect]
     Dosage: 2MG PER DAY
     Route: 065
  9. LANSOPRAZOLE [Suspect]
     Dosage: 30MG PER DAY
     Route: 065
  10. AMIODARONE HCL [Suspect]
     Dosage: 200MG PER DAY
     Route: 065

REACTIONS (5)
  - ATRIAL FIBRILLATION [None]
  - DIZZINESS [None]
  - FATIGUE [None]
  - LEFT VENTRICULAR FAILURE [None]
  - PARAESTHESIA [None]
